FAERS Safety Report 24992389 (Version 2)
Quarter: 2025Q2

REPORT INFORMATION
  Report Type: Report from Study
  Country: US (occurrence: US)
  Receive Date: 20250220
  Receipt Date: 20250511
  Transmission Date: 20250717
  Serious: Yes (Hospitalization)
  Sender: ABBVIE
  Company Number: US-ABBVIE-6069386

PATIENT
  Age: 60 Year
  Sex: Male

DRUGS (4)
  1. SKYRIZI [Suspect]
     Active Substance: RISANKIZUMAB-RZAA
     Indication: Crohn^s disease
     Route: 042
     Dates: start: 20241222
  2. SKYRIZI [Suspect]
     Active Substance: RISANKIZUMAB-RZAA
     Indication: Crohn^s disease
     Route: 042
     Dates: start: 20241101, end: 20241101
  3. SKYRIZI [Suspect]
     Active Substance: RISANKIZUMAB-RZAA
     Indication: Crohn^s disease
     Dosage: DOSAGE: 600 MG/ML
     Route: 042
     Dates: start: 20241201, end: 20241201
  4. PREDNISONE [Suspect]
     Active Substance: PREDNISONE
     Indication: Product used for unknown indication
     Route: 065

REACTIONS (18)
  - Abdominal distension [Unknown]
  - Pneumonia [Not Recovered/Not Resolved]
  - Crohn^s disease [Unknown]
  - Bronchitis [Unknown]
  - Tendon disorder [Not Recovered/Not Resolved]
  - Feeling cold [Unknown]
  - Pain [Unknown]
  - Osteoporosis [Not Recovered/Not Resolved]
  - Vision blurred [Not Recovered/Not Resolved]
  - Dyspnoea [Unknown]
  - Asthenia [Unknown]
  - Secretion discharge [Unknown]
  - Productive cough [Unknown]
  - Wheezing [Unknown]
  - Blood pressure increased [Unknown]
  - Abdominal pain upper [Recovering/Resolving]
  - Muscle spasms [Unknown]
  - Unevaluable event [Unknown]

NARRATIVE: CASE EVENT DATE: 20240101
